FAERS Safety Report 10396100 (Version 1)
Quarter: 2014Q3

REPORT INFORMATION
  Report Type: Spontaneous
  Country: US (occurrence: None)
  Receive Date: 20140815
  Receipt Date: 20140815
  Transmission Date: 20150326
  Serious: Yes (Hospitalization)
  Sender: FDA-Public Use
  Company Number: None

PATIENT
  Age: 36 Year
  Sex: Female
  Weight: 81.65 kg

DRUGS (4)
  1. LYRICA [Suspect]
     Active Substance: PREGABALIN
     Indication: CYST
     Dosage: 3 PILLS PER DAY ?THREE TIMES DAILY?TAKEN BY MOUTH?
     Route: 048
     Dates: start: 20130801
  2. GABAPENTIN. [Suspect]
     Active Substance: GABAPENTIN
     Indication: HYPOAESTHESIA
     Dosage: 180 PILLS IN BOTTLE ?THREE TIMES DAILY?TAKEN BY MOUTH
     Route: 048
     Dates: start: 20120601, end: 20140101
  3. LYRICA [Suspect]
     Active Substance: PREGABALIN
     Indication: HYPOAESTHESIA
     Dosage: 3 PILLS PER DAY ?THREE TIMES DAILY?TAKEN BY MOUTH?
     Route: 048
     Dates: start: 20130801
  4. GABAPENTIN. [Suspect]
     Active Substance: GABAPENTIN
     Dosage: 180 PILLS IN BOTTLE ?THREE TIMES DAILY?TAKEN BY MOUTH
     Route: 048
     Dates: start: 20120601, end: 20140101

REACTIONS (9)
  - Hypoaesthesia [None]
  - Hypersensitivity [None]
  - Swelling [None]
  - Paraesthesia [None]
  - Somnolence [None]
  - Blindness [None]
  - Suicidal ideation [None]
  - Tinnitus [None]
  - Blood pressure increased [None]

NARRATIVE: CASE EVENT DATE: 20130925
